FAERS Safety Report 9203450 (Version 1)
Quarter: 2013Q1

REPORT INFORMATION
  Report Type: Spontaneous
  Country: US (occurrence: None)
  Receive Date: 20130329
  Receipt Date: 20130329
  Transmission Date: 20140127
  Serious: Yes (Other)
  Sender: FDA-Public Use
  Company Number: None

PATIENT
  Sex: 0

DRUGS (1)
  1. BUPIVACAINE [Suspect]
     Indication: SPINAL OPERATION
     Route: 065
     Dates: start: 20130326, end: 20130326

REACTIONS (1)
  - Drug ineffective [None]
